FAERS Safety Report 16996474 (Version 1)
Quarter: 2019Q4

REPORT INFORMATION
  Report Type: Spontaneous
  Country: US (occurrence: US)
  Receive Date: 20191105
  Receipt Date: 20191105
  Transmission Date: 20200122
  Serious: No
  Sender: FDA-Public Use
  Company Number: US-SA-2019SA303715

PATIENT
  Age: 38 Year
  Sex: Female

DRUGS (7)
  1. CULTURELLE [Concomitant]
     Active Substance: LACTOBACILLUS RHAMNOSUS
  2. FISH OIL [Concomitant]
     Active Substance: FISH OIL
  3. CRANBERRY [ASCORBIC ACID;VACCINIUM SPP.] [Concomitant]
     Active Substance: ASCORBIC ACID\CRANBERRY
  4. MOTRIN IB [Concomitant]
     Active Substance: IBUPROFEN
  5. AUBAGIO [Suspect]
     Active Substance: TERIFLUNOMIDE
     Indication: MULTIPLE SCLEROSIS
     Dosage: 14 MG, QD
     Route: 048
     Dates: start: 201902
  6. EXCEDRIN MIGRAINE [Concomitant]
     Active Substance: ACETAMINOPHEN\ASPIRIN\CAFFEINE
  7. CALTRATE 600+D3 PLUS MINERALS [BORON;CALCIUM;COLECALCIFEROL;COPPER;MAG [Concomitant]

REACTIONS (1)
  - Depressed mood [Unknown]

NARRATIVE: CASE EVENT DATE: 2019
